FAERS Safety Report 5388907-2 (Version None)
Quarter: 2007Q3

REPORT INFORMATION
  Report Type: 
  Country: None (occurrence: None)
  Receive Date: 20070713
  Receipt Date: 20070713
  Transmission Date: 20080115
  Serious: No
  Sender: FDA-Public Use
  Company Number: None

PATIENT
  Age: 32 Year
  Sex: Female

DRUGS (1)
  1. TUBERSOL [Suspect]
     Indication: TUBERCULIN TEST
     Dosage: 0.1ML ONCE ID
     Route: 023
     Dates: start: 20070619, end: 20070620

REACTIONS (8)
  - ARTHRALGIA [None]
  - DRUG HYPERSENSITIVITY [None]
  - HEADACHE [None]
  - INFLUENZA LIKE ILLNESS [None]
  - PYREXIA [None]
  - RASH GENERALISED [None]
  - SERUM SICKNESS [None]
  - VISION BLURRED [None]
